FAERS Safety Report 16865296 (Version 3)
Quarter: 2019Q4

REPORT INFORMATION
  Report Type: Spontaneous
  Country: HR (occurrence: HR)
  Receive Date: 20190930
  Receipt Date: 20191119
  Transmission Date: 20200122
  Serious: Yes (Death, Other)
  Sender: FDA-Public Use
  Company Number: HR-ABBVIE-19K-216-2943451-00

PATIENT
  Age: 70 Year
  Sex: Male
  Weight: 65 kg

DRUGS (6)
  1. DUODOPA [Suspect]
     Active Substance: CARBIDOPA\LEVODOPA
     Indication: PARKINSON^S DISEASE
     Dosage: CD: 3.5ML/H BOLUS DOSE: 2.4ML/H?MD: 8.7ML/H
     Route: 050
     Dates: start: 20170117, end: 20190926
  2. TRAMADOL. [Concomitant]
     Active Substance: TRAMADOL
     Indication: PRODUCT USED FOR UNKNOWN INDICATION
     Route: 058
  3. CLEXANE [Concomitant]
     Active Substance: ENOXAPARIN SODIUM
     Indication: PRODUCT USED FOR UNKNOWN INDICATION
     Route: 058
  4. FURSEMID [Concomitant]
     Active Substance: FUROSEMIDE
     Indication: PRODUCT USED FOR UNKNOWN INDICATION
     Route: 042
  5. CONTROLOC [Concomitant]
     Active Substance: PANTOPRAZOLE SODIUM
     Indication: PRODUCT USED FOR UNKNOWN INDICATION
     Route: 048
  6. DUROGESIC [Concomitant]
     Active Substance: FENTANYL
     Indication: PRODUCT USED FOR UNKNOWN INDICATION
     Route: 003

REACTIONS (3)
  - Metastatic malignant melanoma [Fatal]
  - General physical health deterioration [Not Recovered/Not Resolved]
  - Immobile [Not Recovered/Not Resolved]

NARRATIVE: CASE EVENT DATE: 201802
